FAERS Safety Report 17527936 (Version 2)
Quarter: 2020Q2

REPORT INFORMATION
  Report Type: Other
  Country: US (occurrence: US)
  Receive Date: 20200311
  Receipt Date: 20200511
  Transmission Date: 20200713
  Serious: Yes (Hospitalization)
  Sender: FDA-Public Use
  Company Number: US-INTERCEPT-PM2020000342

PATIENT
  Age: 68 Year
  Sex: Female
  Weight: 92 kg

DRUGS (17)
  1. NORVASC [Concomitant]
     Active Substance: AMLODIPINE BESYLATE
     Dosage: 5 MG, QD
     Route: 048
  2. VECTICAL [Concomitant]
     Active Substance: CALCITRIOL
     Route: 048
  3. CLOBEX [Concomitant]
     Active Substance: CLOBETASOL PROPIONATE
     Route: 061
  4. CLARITIN [Concomitant]
     Active Substance: LORATADINE
     Dosage: 10 MG, QD
     Route: 048
  5. ATIVAN [Concomitant]
     Active Substance: LORAZEPAM
     Dosage: UNK
     Dates: end: 20200125
  6. OCALIVA [Suspect]
     Active Substance: OBETICHOLIC ACID
     Dosage: 10 MG, QD
     Route: 048
  7. URSO [Concomitant]
     Active Substance: URSODIOL
     Dosage: 250 MG, BID
     Route: 048
  8. FLONASE [Concomitant]
     Active Substance: FLUTICASONE PROPIONATE
     Route: 045
  9. VENTOLIN HFA [Concomitant]
     Active Substance: ALBUTEROL SULFATE
  10. OCALIVA [Suspect]
     Active Substance: OBETICHOLIC ACID
     Dosage: 5 MG, QD
     Route: 048
     Dates: start: 20200206
  11. FLEXERIL [Concomitant]
     Active Substance: CYCLOBENZAPRINE HYDROCHLORIDE
     Dosage: 5 MG, BID
     Route: 048
  12. CARAFATE [Concomitant]
     Active Substance: SUCRALFATE
     Dosage: 1 G, QID
     Route: 048
  13. OCALIVA [Suspect]
     Active Substance: OBETICHOLIC ACID
     Indication: PRIMARY BILIARY CHOLANGITIS
     Dosage: 5 MG, QD
     Route: 048
     Dates: start: 20191129
  14. VECTICAL [Concomitant]
     Active Substance: CALCITRIOL
     Dosage: UNK
     Route: 061
  15. NEXIUM [Concomitant]
     Active Substance: ESOMEPRAZOLE MAGNESIUM
     Dosage: 40 MG, QD
     Route: 048
  16. NEURONTIN [Concomitant]
     Active Substance: GABAPENTIN
     Dosage: 800 MG, QD
     Route: 048
  17. VALIUM [Concomitant]
     Active Substance: DIAZEPAM

REACTIONS (22)
  - Muscle spasms [Recovered/Resolved]
  - Pain [Recovered/Resolved]
  - Haematocrit abnormal [Unknown]
  - Blood glucose abnormal [Unknown]
  - Globulin abnormal [Unknown]
  - Blood alkaline phosphatase abnormal [Unknown]
  - Hepatic pain [Recovered/Resolved]
  - Nausea [Recovered/Resolved]
  - Ill-defined disorder [Recovered/Resolved]
  - Hyperhidrosis [Recovered/Resolved]
  - Pyrexia [Recovered/Resolved]
  - Abdominal pain upper [Recovered/Resolved]
  - Blood albumin abnormal [Unknown]
  - Red blood cell count abnormal [Unknown]
  - Product dose omission [Recovered/Resolved]
  - Chills [Recovered/Resolved]
  - Glomerular filtration rate abnormal [Unknown]
  - Albumin globulin ratio abnormal [Unknown]
  - Fatigue [Not Recovered/Not Resolved]
  - Joint swelling [Recovered/Resolved]
  - Arthralgia [Recovered/Resolved]
  - Myalgia [Unknown]

NARRATIVE: CASE EVENT DATE: 20200125
